FAERS Safety Report 15857216 (Version 1)
Quarter: 2019Q1

REPORT INFORMATION
  Report Type: Spontaneous
  Country: GB (occurrence: GB)
  Receive Date: 20190123
  Receipt Date: 20190123
  Transmission Date: 20190417
  Serious: Yes (Hospitalization, Other)
  Sender: FDA-Public Use
  Company Number: GB-ACCORD-103014

PATIENT
  Age: 32 Year
  Sex: Male

DRUGS (4)
  1. HYOSCINE [Concomitant]
     Active Substance: SCOPOLAMINE
  2. CLOZAPINE. [Suspect]
     Active Substance: CLOZAPINE
     Indication: SCHIZOPHRENIA
     Route: 048
     Dates: start: 20180309, end: 20180328
  3. LAMOTRIGINE. [Concomitant]
     Active Substance: LAMOTRIGINE
  4. CASSIA ANGUSTIFOLIA [Concomitant]
     Active Substance: SENNA LEAF

REACTIONS (2)
  - Myocarditis [Recovering/Resolving]
  - Pain [Recovering/Resolving]
